FAERS Safety Report 6032768-5 (Version None)
Quarter: 2008Q4

REPORT INFORMATION
  Report Type: 
  Country: None (occurrence: None)
  Receive Date: 20081224
  Receipt Date: 20080929
  Transmission Date: 20090506
  Serious: No
  Sender: FDA-Public Use
  Company Number: 2008PV036810

PATIENT
  Age: 73 Year
  Sex: Female
  Weight: 113.3993 kg

DRUGS (9)
  1. SYMLIN [Suspect]
     Indication: TYPE 2 DIABETES MELLITUS
     Dosage: 120 MCG;BID;SC
     Route: 058
     Dates: start: 20050101
  2. HUMALOG [Concomitant]
  3. HUMULIN N [Concomitant]
  4. ALLOPURINOL [Concomitant]
  5. PLAVIX [Concomitant]
  6. VALSARTAN [Concomitant]
  7. LASIX [Concomitant]
  8. EPOGEN [Concomitant]
  9. SYNTHROID [Concomitant]

REACTIONS (3)
  - RHINORRHOEA [None]
  - SINUS CONGESTION [None]
  - THYROID DISORDER [None]
